FAERS Safety Report 14612676 (Version 3)
Quarter: 2018Q3

REPORT INFORMATION
  Report Type: Report from Study
  Country: FR (occurrence: FR)
  Receive Date: 20180308
  Receipt Date: 20180716
  Transmission Date: 20181010
  Serious: Yes (Other)
  Sender: FDA-Public Use
  Company Number: FR-JNJFOC-20160217494

PATIENT
  Age: 27 Year
  Sex: Female
  Weight: 53 kg

DRUGS (2)
  1. SIMPONI [Suspect]
     Active Substance: GOLIMUMAB
     Indication: ANKYLOSING SPONDYLITIS
     Route: 058
     Dates: start: 20160113
  2. SIMPONI [Suspect]
     Active Substance: GOLIMUMAB
     Indication: ANKYLOSING SPONDYLITIS
     Route: 058
     Dates: start: 20151020, end: 20160113

REACTIONS (5)
  - Colitis [Unknown]
  - Off label use [Unknown]
  - Inappropriate schedule of drug administration [Unknown]
  - Cervical dysplasia [Not Recovered/Not Resolved]
  - Papilloma viral infection [Not Recovered/Not Resolved]

NARRATIVE: CASE EVENT DATE: 20160113
